FAERS Safety Report 4606114-5 (Version None)
Quarter: 2005Q1

REPORT INFORMATION
  Report Type: 
  Country: None (occurrence: None)
  Receive Date: 20050309
  Receipt Date: 20050225
  Transmission Date: 20050727
  Serious: Yes (Hospitalization)
  Sender: FDA-Public Use
  Company Number: US014707

PATIENT
  Age: 39 Year
  Sex: Female
  Weight: 65.7716 kg

DRUGS (5)
  1. PROVIGIL [Suspect]
     Dosage: 100 MG ORAL
     Route: 048
  2. BETASERON [Suspect]
     Indication: MULTIPLE SCLEROSIS
     Dosage: 8 MIU QOD SUBCUTANEOUS
     Route: 058
     Dates: start: 20041016, end: 20050110
  3. PREDNISONE [Suspect]
     Dosage: 15 MG
  4. BACLOFEN [Suspect]
     Dosage: 10 MG
  5. SYNTHROID [Concomitant]

REACTIONS (2)
  - DRUG INTERACTION [None]
  - GRAND MAL CONVULSION [None]
